FAERS Safety Report 23250269 (Version 1)
Quarter: 2023Q4

REPORT INFORMATION
  Report Type: Spontaneous
  Country: CN (occurrence: CN)
  Receive Date: 20231201
  Receipt Date: 20231201
  Transmission Date: 20240110
  Serious: Yes (Hospitalization, Other)
  Sender: FDA-Public Use
  Company Number: None

PATIENT
  Age: 25 Year
  Sex: Male

DRUGS (6)
  1. IFOSFAMIDE [Suspect]
     Active Substance: IFOSFAMIDE
     Indication: Brain neoplasm
     Dosage: 2 G, ONE TIME IN ONE DAY, Q3W, D1-4
     Route: 041
     Dates: start: 20230928, end: 20231001
  2. MESNA [Suspect]
     Active Substance: MESNA
     Indication: Brain neoplasm
     Dosage: 0.4G TID, TID, Q3W, (ADMINISTERED 0H/4H/8H AFTER IFOSFAMIDE ADMINISTRATION), D1-4
     Route: 065
     Dates: start: 20230928, end: 20231001
  3. ETOPOSIDE [Suspect]
     Active Substance: ETOPOSIDE
     Indication: Brain neoplasm
     Dosage: 200 MG, ONE TIME IN ONE DAY, Q3W, D1-3
     Route: 041
     Dates: start: 20230928, end: 20230930
  4. ETOPOSIDE [Suspect]
     Active Substance: ETOPOSIDE
     Dosage: 100 MG, ONE TIME IN ONE DAY, Q3W, D4
     Route: 041
     Dates: start: 20231001
  5. CISPLATIN [Suspect]
     Active Substance: CISPLATIN
     Indication: Brain neoplasm
     Dosage: 30 MG, ONE TIME IN ONE DAY, D1-3, (LYOPHILIZED)
     Route: 041
     Dates: start: 20230928, end: 20230930
  6. CISPLATIN [Suspect]
     Active Substance: CISPLATIN
     Dosage: 40 MG, Q3W, D4
     Route: 041
     Dates: start: 20231001

REACTIONS (1)
  - Myelosuppression [Recovering/Resolving]

NARRATIVE: CASE EVENT DATE: 20231009
